FAERS Safety Report 8506931 (Version 3)
Quarter: 2013Q2

REPORT INFORMATION
  Report Type: Spontaneous
  Country: US (occurrence: US)
  Receive Date: 20120412
  Receipt Date: 20130410
  Transmission Date: 20140414
  Serious: Yes (Other)
  Sender: FDA-Public Use
  Company Number: US-ASTRAZENECA-2011SE50488

PATIENT
  Age: 48 Year
  Sex: Male

DRUGS (4)
  1. NEXIUM [Suspect]
     Indication: GASTROOESOPHAGEAL REFLUX DISEASE
     Route: 048
     Dates: start: 2010
  2. NEXIUM [Suspect]
     Indication: GASTROOESOPHAGEAL REFLUX DISEASE
     Route: 048
     Dates: start: 2010
  3. PRILOSEC [Suspect]
     Route: 048
  4. PROTONIX [Concomitant]

REACTIONS (14)
  - Pancreatitis [Unknown]
  - Pancreatic disorder [Unknown]
  - Aphagia [Unknown]
  - Quality of life decreased [Unknown]
  - Weight decreased [Unknown]
  - Decreased appetite [Unknown]
  - Retching [Unknown]
  - Somnolence [Unknown]
  - Dyspepsia [Unknown]
  - Abdominal pain upper [Unknown]
  - Nausea [Unknown]
  - Abdominal discomfort [Unknown]
  - Drug ineffective [Unknown]
  - Drug dose omission [Unknown]
